FAERS Safety Report 23598743 (Version 1)
Quarter: 2024Q1

REPORT INFORMATION
  Report Type: Spontaneous
  Country: DE (occurrence: DE)
  Receive Date: 20240306
  Receipt Date: 20240306
  Transmission Date: 20240410
  Serious: Yes (Other)
  Sender: FDA-Public Use
  Company Number: DE-BRISTOL-MYERS SQUIBB COMPANY-BMS-2022-007539

PATIENT
  Age: 59 Year
  Sex: Male

DRUGS (38)
  1. CARBOPLATIN [Suspect]
     Active Substance: CARBOPLATIN
     Indication: Non-small cell lung cancer
     Dosage: 700 MG, TIW (700 MILLIGRAM)
     Route: 042
     Dates: start: 20210726, end: 20210817
  2. OPDIVO [Suspect]
     Active Substance: NIVOLUMAB
     Indication: Non-small cell lung cancer
     Dosage: 360 MG, TIW (360 MILLIGRAM)
     Route: 042
     Dates: start: 20210726
  3. PACLITAXEL [Suspect]
     Active Substance: PACLITAXEL
     Indication: Non-small cell lung cancer
     Dosage: 360 MG
     Route: 065
     Dates: start: 20210726, end: 20210817
  4. YERVOY [Suspect]
     Active Substance: IPILIMUMAB
     Indication: Non-small cell lung cancer
     Dosage: 60 MG, TIW (60 MILLIGRAM)
     Route: 042
     Dates: start: 20210726
  5. METHYLPREDNISOLONE ACEPONATE [Concomitant]
     Active Substance: METHYLPREDNISOLONE ACEPONATE
     Indication: Pruritus
     Dosage: UNK, QD
     Route: 065
     Dates: start: 20210817, end: 20210927
  6. ASPIRIN [Concomitant]
     Active Substance: ASPIRIN
     Indication: Product used for unknown indication
     Dosage: 100 MG, QD
     Route: 065
  7. CANDESARTAN CILEXETIL [Concomitant]
     Active Substance: CANDESARTAN CILEXETIL
     Dosage: 32 MG EVERY SECOND DAYUNK
     Route: 065
     Dates: start: 20200115
  8. CANDESARTAN CILEXETIL [Concomitant]
     Active Substance: CANDESARTAN CILEXETIL
     Dosage: 32 MG EVERY SECOND DAYUNK
     Route: 065
     Dates: start: 20200115
  9. CANDESARTAN CILEXETIL [Concomitant]
     Active Substance: CANDESARTAN CILEXETIL
     Indication: Product used for unknown indication
     Dosage: 32 MG EVERY SECOND DAY
     Route: 065
     Dates: start: 20200115
  10. CLEMASTINE [Concomitant]
     Active Substance: CLEMASTINE
     Indication: Prophylaxis
     Dosage: 2 MG, QD
     Route: 065
  11. CLEMASTINE [Concomitant]
     Active Substance: CLEMASTINE
     Dosage: 2 MG, QD
     Route: 065
  12. CLEMASTINE [Concomitant]
     Active Substance: CLEMASTINE
     Dosage: 2 MG, QD
     Route: 065
  13. CLEMASTINE [Concomitant]
     Active Substance: CLEMASTINE
     Dosage: 2MG/DAYUNK
     Route: 065
  14. CLEMASTINE [Concomitant]
     Active Substance: CLEMASTINE
     Dosage: 2MG/DAYUNK
     Route: 065
  15. CLEMASTINE [Concomitant]
     Active Substance: CLEMASTINE
     Dosage: 2MG/DAYUNK
     Route: 065
  16. CLEMASTINE [Concomitant]
     Active Substance: CLEMASTINE
     Dosage: 2MG/DAYUNK
     Route: 065
  17. CLEMASTINE [Concomitant]
     Active Substance: CLEMASTINE
     Dosage: 2MG/DAYUNK
     Route: 065
  18. CLEMASTINE [Concomitant]
     Active Substance: CLEMASTINE
     Dosage: 2MG/DAYUNK
     Route: 065
  19. DENOSUMAB [Concomitant]
     Active Substance: DENOSUMAB
     Indication: Product used for unknown indication
     Route: 065
  20. DENOSUMAB [Concomitant]
     Active Substance: DENOSUMAB
     Indication: Product used for unknown indication
     Route: 065
  21. DEXAMETHASONE [Concomitant]
     Active Substance: DEXAMETHASONE
     Indication: Prophylaxis
     Dosage: 20 MG, QD
     Route: 065
  22. DEXAMETHASONE [Concomitant]
     Active Substance: DEXAMETHASONE
     Dosage: 20 MG, QD
     Route: 065
  23. EZETIMIBE [Concomitant]
     Active Substance: EZETIMIBE
     Indication: Product used for unknown indication
     Dosage: 10 MG, QD
     Route: 065
     Dates: start: 20210615
  24. LEVOTHYROXINE SODIUM [Concomitant]
     Active Substance: LEVOTHYROXINE SODIUM
     Indication: Hypothyroidism
     Dosage: UNK (L-THYROXIN 25: 1 ML/DAILY, L THYROXIN 125 UG, 150 UG/DAY)
     Route: 065
     Dates: start: 20211012, end: 20220112
  25. SODIUM PICOSULFATE [Concomitant]
     Active Substance: SODIUM PICOSULFATE
     Indication: Prophylaxis
     Dosage: UNK
     Route: 065
  26. MAGNESIUM [Concomitant]
     Active Substance: MAGNESIUM
     Indication: Muscle spasms
     Dosage: DAILY (DOSE NOT REPORTED)
     Route: 065
     Dates: start: 20210915, end: 20211018
  27. METAMIZOLE [Concomitant]
     Active Substance: METAMIZOLE
     Indication: Arthralgia
     Dosage: DAILY (DOSE NOT REPORTED)
     Route: 065
     Dates: start: 20210815
  28. METAMIZOLE [Concomitant]
     Active Substance: METAMIZOLE
     Indication: Myalgia
  29. METAMIZOLE [Concomitant]
     Active Substance: METAMIZOLE
     Indication: Product used for unknown indication
     Dosage: 500 MG, QD
     Route: 065
     Dates: start: 20190406
  30. PALONOSETRON [Concomitant]
     Active Substance: PALONOSETRON
     Indication: Prophylaxis
     Dosage: 0.25 MG, QD
     Route: 065
  31. PALONOSETRON [Concomitant]
     Active Substance: PALONOSETRON
     Dosage: 0.25 MG, QD
     Route: 065
  32. PALONOSETRON [Concomitant]
     Active Substance: PALONOSETRON
     Dosage: 0.25 MG, QD
     Route: 065
  33. RANITIDINE HYDROCHLORIDE [Concomitant]
     Active Substance: RANITIDINE HYDROCHLORIDE
     Indication: Prophylaxis
     Dosage: 10 MG, QD
     Route: 065
  34. RANITIDINE HYDROCHLORIDE [Concomitant]
     Active Substance: RANITIDINE HYDROCHLORIDE
     Dosage: 10 MG, QD
     Route: 065
  35. RANITIDINE HYDROCHLORIDE [Concomitant]
     Active Substance: RANITIDINE HYDROCHLORIDE
     Dosage: 10 MG, QD
     Route: 065
  36. REPATHA [Concomitant]
     Active Substance: EVOLOCUMAB
     Indication: Product used for unknown indication
     Dosage: 140 MG, QD
     Route: 065
  37. GLYCOPYRRONIUM\INDACATEROL [Concomitant]
     Active Substance: GLYCOPYRRONIUM\INDACATEROL
     Indication: Product used for unknown indication
     Dosage: UNK (43-58UG, FREQUENCY NOT REPORTED)
     Route: 065
     Dates: start: 20190327
  38. ZOFRAN [Concomitant]
     Active Substance: ONDANSETRON HYDROCHLORIDE
     Indication: Nausea
     Dosage: UNK
     Route: 065

REACTIONS (5)
  - Malignant neoplasm progression [Unknown]
  - Constipation [Unknown]
  - Muscle spasms [Recovered/Resolved]
  - Off label use [Unknown]
  - Pruritus [Unknown]

NARRATIVE: CASE EVENT DATE: 20210928
